FAERS Safety Report 4985736-6 (Version None)
Quarter: 2006Q2

REPORT INFORMATION
  Report Type: 
  Country: None (occurrence: None)
  Receive Date: 20060428
  Receipt Date: 20060424
  Transmission Date: 20061013
  Serious: Yes (Other)
  Sender: FDA-Public Use
  Company Number: PHBS2006BR05880

PATIENT
  Age: 27 Year
  Sex: Male
  Weight: 103 kg

DRUGS (3)
  1. PAMELOR [Concomitant]
     Indication: DEPRESSION
     Route: 048
  2. TEGRETOL [Suspect]
     Indication: BIPOLAR DISORDER
     Dosage: 200 MG, UNK
     Route: 048
  3. TEGRETOL [Suspect]
     Dosage: 400 MG, BID
     Route: 048
     Dates: start: 20060401, end: 20060423

REACTIONS (2)
  - DIPLOPIA [None]
  - VERTIGO [None]
